FAERS Safety Report 5880417-9 (Version None)
Quarter: 2008Q3

REPORT INFORMATION
  Report Type: 
  Country: None (occurrence: None)
  Receive Date: 20080912
  Receipt Date: 20080901
  Transmission Date: 20090109
  Serious: Yes (Other)
  Sender: FDA-Public Use
  Company Number: DE-PFIZER INC-2008069588

PATIENT
  Sex: Male

DRUGS (4)
  1. LYRICA [Suspect]
     Indication: NEUROPATHY PERIPHERAL
     Dates: start: 20080208, end: 20080810
  2. LYRICA [Suspect]
     Indication: NEURALGIA
  3. LYRICA [Suspect]
     Indication: GENERALISED ANXIETY DISORDER
  4. CODEINE SUL TAB [Suspect]
     Route: 048

REACTIONS (9)
  - CYANOSIS [None]
  - DYSPNOEA [None]
  - FATIGUE [None]
  - OEDEMA [None]
  - PNEUMONIA [None]
  - POLYCYTHAEMIA [None]
  - RESPIRATORY FAILURE [None]
  - SOMNOLENCE [None]
  - WITHDRAWAL SYNDROME [None]
